FAERS Safety Report 15698057 (Version 1)
Quarter: 2018Q4

REPORT INFORMATION
  Report Type: Spontaneous
  Country: AU (occurrence: AU)
  Receive Date: 20181207
  Receipt Date: 20181207
  Transmission Date: 20190205
  Serious: Yes (Other)
  Sender: FDA-Public Use
  Company Number: AU-TEVA-2018-AU-984725

PATIENT
  Age: 39 Year
  Sex: Female

DRUGS (14)
  1. SANDOMIGRAN [Suspect]
     Active Substance: PIZOTYLINE
     Route: 065
  2. MAGNESIUM [Suspect]
     Active Substance: MAGNESIUM
     Route: 065
  3. SIFROL ER [Suspect]
     Active Substance: PRAMIPEXOLE
     Route: 065
  4. CINNARIZINE [Suspect]
     Active Substance: CINNARIZINE
     Route: 065
  5. ZONEGRAN [Suspect]
     Active Substance: ZONISAMIDE
     Route: 065
  6. BOTOX [Suspect]
     Active Substance: ONABOTULINUMTOXINA
     Route: 065
  7. PROGYNOVA [Suspect]
     Active Substance: ESTRADIOL VALERATE
     Route: 065
  8. TOPIRAMATE. [Suspect]
     Active Substance: TOPIRAMATE
     Route: 065
  9. LAMOTRIGINE. [Suspect]
     Active Substance: LAMOTRIGINE
     Route: 065
  10. QUETIAPINE FUMARATE. [Suspect]
     Active Substance: QUETIAPINE FUMARATE
     Route: 065
  11. ERGOCALCIFEROL. [Suspect]
     Active Substance: ERGOCALCIFEROL
     Route: 065
  12. ENDEP [Suspect]
     Active Substance: AMITRIPTYLINE HYDROCHLORIDE
     Route: 065
  13. EPILIM [Suspect]
     Active Substance: VALPROATE SODIUM
     Route: 065
  14. ATACAND [Suspect]
     Active Substance: CANDESARTAN CILEXETIL
     Route: 065

REACTIONS (8)
  - Bipolar disorder [Unknown]
  - Migraine [Unknown]
  - Restless legs syndrome [Unknown]
  - Weight increased [Unknown]
  - Drug effect decreased [Unknown]
  - Endometrial cancer [Unknown]
  - Vestibular migraine [Unknown]
  - Therapeutic response changed [Unknown]
